FAERS Safety Report 9079625 (Version 1)
Quarter: 2013Q1

REPORT INFORMATION
  Report Type: Spontaneous
  Country: US (occurrence: US)
  Receive Date: 20130130
  Receipt Date: 20130130
  Transmission Date: 20140127
  Serious: No
  Sender: FDA-Public Use
  Company Number: US-ABBOTT-12P-163-0977175-00

PATIENT
  Age: 23 Year
  Sex: Male
  Weight: 74.91 kg

DRUGS (3)
  1. HUMIRA [Suspect]
     Indication: CROHN^S DISEASE
     Dates: start: 20120905, end: 20120905
  2. PREDNISONE [Concomitant]
     Indication: CROHN^S DISEASE
  3. AMITRIPTYLINE AND PSYCHOLEPTICS [Concomitant]
     Indication: CROHN^S DISEASE

REACTIONS (2)
  - Injection site haemorrhage [Recovered/Resolved]
  - Injection site haemorrhage [Recovered/Resolved]
